FAERS Safety Report 13517600 (Version 1)
Quarter: 2017Q2

REPORT INFORMATION
  Report Type: Spontaneous
  Country: US (occurrence: US)
  Receive Date: 20170505
  Receipt Date: 20170505
  Transmission Date: 20170830
  Serious: Yes (Hospitalization)
  Sender: FDA-Public Use
  Company Number: None

PATIENT
  Age: 92 Year
  Sex: Female
  Weight: 83.9 kg

DRUGS (9)
  1. COLCHICINE. [Concomitant]
     Active Substance: COLCHICINE
  2. MONOPRIL [Concomitant]
     Active Substance: FOSINOPRIL SODIUM
  3. NITRO-DUR [Concomitant]
     Active Substance: NITROGLYCERIN
  4. ANTIVERT [Concomitant]
     Active Substance: MECLIZINE HYDROCHLORIDE
  5. GLIMEPIRIDE. [Suspect]
     Active Substance: GLIMEPIRIDE
     Indication: DIABETES MELLITUS
     Dosage: 2MG QAM BEFORE BREAKFAST PO
     Route: 048
  6. LASIX [Concomitant]
     Active Substance: FUROSEMIDE
  7. ATENOLOL. [Concomitant]
     Active Substance: ATENOLOL
  8. ADVAIR HFA [Concomitant]
     Active Substance: FLUTICASONE PROPIONATE\SALMETEROL XINAFOATE
  9. PRILOSEC [Concomitant]
     Active Substance: OMEPRAZOLE MAGNESIUM

REACTIONS (2)
  - Hypoglycaemia [None]
  - Mental status changes [None]

NARRATIVE: CASE EVENT DATE: 20150810
